FAERS Safety Report 7703247-1 (Version None)
Quarter: 2011Q3

REPORT INFORMATION
  Report Type: 
  Country: None (occurrence: None)
  Receive Date: 20110817
  Receipt Date: 20110812
  Transmission Date: 20111222
  Serious: Yes (Death, Hospitalization, Other)
  Sender: FDA-Public Use
  Company Number: 2011SP035645

PATIENT
  Age: 22 Year
  Sex: Male

DRUGS (16)
  1. REMERON [Suspect]
     Indication: DEPRESSIVE SYMPTOM
     Dosage: 15 MG;QD;PO 30 MG;QD;PO
     Route: 048
     Dates: start: 20110507, end: 20110720
  2. REMERON [Suspect]
     Indication: SUICIDAL IDEATION
     Dosage: 15 MG;QD;PO 30 MG;QD;PO
     Route: 048
     Dates: start: 20110507, end: 20110720
  3. REMERON [Suspect]
     Indication: DEPRESSIVE SYMPTOM
     Dosage: 15 MG;QD;PO 30 MG;QD;PO
     Route: 048
     Dates: start: 20110203, end: 20110219
  4. REMERON [Suspect]
     Indication: SUICIDAL IDEATION
     Dosage: 15 MG;QD;PO 30 MG;QD;PO
     Route: 048
     Dates: start: 20110203, end: 20110219
  5. SILECE (FLUNITRAZEPAM) [Suspect]
     Indication: INSOMNIA
     Dosage: 2 MG;QD;PO
     Route: 048
     Dates: start: 20110301, end: 20110720
  6. LEXOTAN (BROMAZEPAM) [Suspect]
     Indication: IRRITABILITY
     Dosage: 5 MG;BID;PO
     Route: 048
     Dates: start: 20110630, end: 20110720
  7. AMOXAPINE [Suspect]
     Indication: LISTLESS
     Dosage: 25 MG;BID;PO
     Route: 048
     Dates: start: 20100602, end: 20110720
  8. BETAMAC (SULPIRIDE) (NO PREF. NAME) [Suspect]
     Indication: DECREASED APPETITE
     Dosage: 50 MG;BID;PO
     Route: 048
     Dates: start: 20101208, end: 20110720
  9. BENZALIN (NITRAZEPAM) [Suspect]
     Indication: INSOMNIA
     Dosage: 10 MG;QD;PO
     Route: 048
     Dates: start: 20110301, end: 20110720
  10. PHENOBARBITAL TAB [Concomitant]
  11. PROTECADIN [Concomitant]
  12. RHYTHYMY (RILMAZAFONE HYDROCHLORIDE HYDRATE) [Concomitant]
  13. JZOLOFT (SERTRALINE HYDROCHLORIDE) (SERTRALINE HYDROCHLORIDE) [Suspect]
     Indication: DEPRESSION
     Dosage: 25 MG;QD;PO 50 MG;QD;PO 100 MG;QD;PO
     Route: 048
     Dates: start: 20101208, end: 20110330
  14. JZOLOFT (SERTRALINE HYDROCHLORIDE) (SERTRALINE HYDROCHLORIDE) [Suspect]
     Indication: DEPRESSION
     Dosage: 25 MG;QD;PO 50 MG;QD;PO 100 MG;QD;PO
     Route: 048
     Dates: start: 20110512, end: 20110709
  15. JZOLOFT (SERTRALINE HYDROCHLORIDE) (SERTRALINE HYDROCHLORIDE) [Suspect]
     Indication: DEPRESSION
     Dosage: 25 MG;QD;PO 50 MG;QD;PO 100 MG;QD;PO
     Route: 048
     Dates: start: 20110331, end: 20110511
  16. U-PAN (LORAZEPAM) [Suspect]
     Indication: IRRITABILITY
     Dosage: 1 MG;BID;PO
     Route: 048
     Dates: start: 20110421, end: 20110720

REACTIONS (2)
  - COMPLETED SUICIDE [None]
  - MULTIPLE DRUG OVERDOSE INTENTIONAL [None]
